FAERS Safety Report 13185362 (Version 6)
Quarter: 2017Q2

REPORT INFORMATION
  Report Type: Report from Study
  Country: US (occurrence: US)
  Receive Date: 20170203
  Receipt Date: 20170426
  Transmission Date: 20170830
  Serious: Yes (Other)
  Sender: FDA-Public Use
  Company Number: US-009507513-1701USA009497

PATIENT
  Age: 68 Year
  Sex: Female

DRUGS (12)
  1. PEMBROLIZUMAB. [Suspect]
     Active Substance: PEMBROLIZUMAB
     Indication: LUNG CANCER METASTATIC
     Dosage: UNK, Q3W
     Route: 042
     Dates: start: 20161215
  2. ARIXTRA [Concomitant]
     Active Substance: FONDAPARINUX SODIUM
     Dosage: UNK, QD
  3. CALCIUM (UNSPECIFIED) [Concomitant]
     Active Substance: CALCIUM
  4. CHOLECALCIFEROL [Concomitant]
     Active Substance: CHOLECALCIFEROL
  5. METOPROLOL. [Concomitant]
     Active Substance: METOPROLOL
  6. ATORVASTATIN [Concomitant]
     Active Substance: ATORVASTATIN
  7. PEMBROLIZUMAB. [Suspect]
     Active Substance: PEMBROLIZUMAB
     Dosage: UNK, Q3W
     Route: 042
     Dates: start: 20170126
  8. PEMBROLIZUMAB. [Suspect]
     Active Substance: PEMBROLIZUMAB
     Dosage: UNK, Q3W
     Route: 042
  9. VITAMINS (UNSPECIFIED) [Concomitant]
     Active Substance: VITAMINS
  10. TUMS [Concomitant]
     Active Substance: CALCIUM CARBONATE
  11. ZOMETA [Concomitant]
     Active Substance: ZOLEDRONIC ACID
     Indication: OSTEOPOROSIS
     Dosage: UNK
     Route: 042
     Dates: start: 20161215
  12. PEPCID RPD [Concomitant]
     Active Substance: FAMOTIDINE
     Route: 048

REACTIONS (16)
  - Cough [Unknown]
  - Body temperature abnormal [Recovered/Resolved]
  - Vessel puncture site haemorrhage [Unknown]
  - Arthralgia [Recovered/Resolved]
  - Injury associated with device [Unknown]
  - Anaemia [Unknown]
  - Feeling abnormal [Not Recovered/Not Resolved]
  - Malignant neoplasm progression [Unknown]
  - Laboratory test abnormal [Unknown]
  - Poor venous access [Unknown]
  - Diarrhoea [Not Recovered/Not Resolved]
  - Depressed mood [Not Recovered/Not Resolved]
  - Malaise [Unknown]
  - Pneumonitis [Recovering/Resolving]
  - Atrial fibrillation [Unknown]
  - Asthenia [Not Recovered/Not Resolved]

NARRATIVE: CASE EVENT DATE: 201612
